FAERS Safety Report 8232780-1 (Version None)
Quarter: 2012Q1

REPORT INFORMATION
  Report Type: 
  Country: None (occurrence: None)
  Receive Date: 20120323
  Receipt Date: 20120319
  Transmission Date: 20120608
  Serious: Yes (Other)
  Sender: FDA-Public Use
  Company Number: US-MERCK-1202USA03149

PATIENT
  Age: 64 Year
  Sex: Female

DRUGS (9)
  1. OXYBUTYNIN [Concomitant]
     Route: 065
  2. TRAMADOL HYDROCHLORIDE [Concomitant]
     Route: 065
  3. INSULIN [Concomitant]
     Route: 065
  4. NORTRIPTYLINE [Concomitant]
     Route: 065
  5. LISINOPRIL [Concomitant]
     Route: 048
  6. JANUVIA [Suspect]
     Indication: TYPE 2 DIABETES MELLITUS
     Route: 048
     Dates: start: 20100121, end: 20111201
  7. ACTOPLUS MET [Suspect]
     Route: 065
  8. FUROSEMIDE [Concomitant]
     Route: 065
  9. PROCARDIA [Concomitant]
     Route: 065

REACTIONS (6)
  - RENAL DISORDER [None]
  - RENAL FAILURE CHRONIC [None]
  - SMALL INTESTINAL OBSTRUCTION [None]
  - UMBILICAL HERNIA [None]
  - BLOOD GLUCOSE ABNORMAL [None]
  - VOLVULUS [None]
